FAERS Safety Report 10221633 (Version 1)
Quarter: 2014Q2

REPORT INFORMATION
  Report Type: Spontaneous
  Country: US (occurrence: None)
  Receive Date: 20140605
  Receipt Date: 20140605
  Transmission Date: 20141212
  Serious: No
  Sender: FDA-Public Use
  Company Number: None

PATIENT
  Sex: Female

DRUGS (1)
  1. NEUPOGEN [Suspect]
     Dosage: 300 MCG  SQ  DAILY FOR 10 DAY Q2 WEEKS
     Route: 058
     Dates: start: 20140321

REACTIONS (4)
  - Erythema [None]
  - Dry skin [None]
  - Local swelling [None]
  - Local swelling [None]
